FAERS Safety Report 6449261-8 (Version None)
Quarter: 2009Q4

REPORT INFORMATION
  Report Type: 
  Country: None (occurrence: None)
  Receive Date: 20091120
  Receipt Date: 20091116
  Transmission Date: 20100525
  Serious: Yes (Death, Hospitalization)
  Sender: FDA-Public Use
  Company Number: GB-CELGENEUS-167-50794-09111195

PATIENT
  Sex: Male
  Weight: 64.4 kg

DRUGS (8)
  1. VIDAZA [Suspect]
     Indication: ACUTE MYELOID LEUKAEMIA
     Route: 050
     Dates: start: 20090908
  2. VALPROATE SODIUM [Suspect]
     Indication: ACUTE MYELOID LEUKAEMIA
     Route: 065
     Dates: start: 20091007
  3. ATRA [Suspect]
     Indication: ACUTE MYELOID LEUKAEMIA
     Route: 065
  4. THEOPHYLLINE [Suspect]
     Indication: ACUTE MYELOID LEUKAEMIA
     Route: 065
  5. OXYGEN [Concomitant]
     Route: 055
  6. MST [Concomitant]
     Indication: PAIN
     Route: 048
     Dates: start: 20091005
  7. ORAMORPH SR [Concomitant]
     Indication: DRUG USE FOR UNKNOWN INDICATION
     Route: 065
     Dates: start: 20091002
  8. HYDROXYUREA [Concomitant]
     Indication: DRUG USE FOR UNKNOWN INDICATION
     Route: 065

REACTIONS (2)
  - DEATH [None]
  - DYSPNOEA [None]
